FAERS Safety Report 5510372-2 (Version None)
Quarter: 2007Q4

REPORT INFORMATION
  Report Type: 
  Country: None (occurrence: None)
  Receive Date: 20071108
  Receipt Date: 20071030
  Transmission Date: 20080405
  Serious: Yes (Hospitalization)
  Sender: FDA-Public Use
  Company Number: US-AMGEN-STX244867

PATIENT
  Sex: Female
  Weight: 68.1 kg

DRUGS (26)
  1. ENBREL [Suspect]
     Indication: RHEUMATOID ARTHRITIS
     Route: 058
     Dates: start: 20031027, end: 20070912
  2. PREDNISONE TAB [Concomitant]
     Dates: start: 20050908
  3. FOSAMAX [Concomitant]
     Dates: start: 20020220
  4. FIORICET [Concomitant]
     Dates: start: 20020220
  5. OSCAL [Concomitant]
     Dates: start: 20020220
  6. ANSAID [Concomitant]
     Dates: start: 20020220, end: 20051103
  7. VENTOLIN [Concomitant]
     Dates: start: 20020220
  8. MINOCIN [Concomitant]
     Dates: start: 20020220
  9. VICODIN [Concomitant]
     Dates: start: 20020220
  10. MAXAIR [Concomitant]
     Dates: start: 20020220
  11. SERZONE [Concomitant]
     Dates: start: 20020220
  12. TRIAMTERENE AND HYDROCHLOROTHIAZIDE [Concomitant]
     Dates: start: 20020619
  13. QUININE [Concomitant]
     Dates: start: 20021016, end: 20070613
  14. VITAMIN CAP [Concomitant]
     Dates: start: 20021016
  15. POTASSIUM CHLORIDE [Concomitant]
     Dates: start: 20021016
  16. CALCIUM [Concomitant]
  17. SINEMET [Concomitant]
  18. CLONAZEPAM [Concomitant]
     Dates: end: 20070613
  19. NEXIUM [Concomitant]
     Dates: end: 20050729
  20. DARVON [Concomitant]
     Dates: end: 20070613
  21. PROTONIX [Concomitant]
     Dates: start: 20050908
  22. COMBIVENT [Concomitant]
     Dates: start: 20061101
  23. BENADRYL [Concomitant]
     Dates: start: 20061101
  24. DARVOCET [Concomitant]
     Dates: start: 20060531
  25. IRON [Concomitant]
     Dates: start: 20060531
  26. ASPIRIN [Concomitant]
     Dates: start: 20060727

REACTIONS (16)
  - ASTHENIA [None]
  - CARDIAC FLUTTER [None]
  - CHEMICAL POISONING [None]
  - CHONDROCALCINOSIS PYROPHOSPHATE [None]
  - COUGH [None]
  - DIZZINESS [None]
  - HYPOAESTHESIA [None]
  - NERVOUSNESS [None]
  - PARAESTHESIA [None]
  - PLEURAL EFFUSION [None]
  - RHEUMATOID ARTHRITIS [None]
  - SENSORY DISTURBANCE [None]
  - SYNOVIAL CYST [None]
  - SYNOVITIS [None]
  - VENTRICULAR EXTRASYSTOLES [None]
  - VISUAL DISTURBANCE [None]
